FAERS Safety Report 8327015-5 (Version None)
Quarter: 2012Q2

REPORT INFORMATION
  Report Type: 
  Country: None (occurrence: None)
  Receive Date: 20120501
  Receipt Date: 20111123
  Transmission Date: 20120825
  Serious: No
  Sender: FDA-Public Use
  Company Number: US-SANOFI-AVENTIS-2011SA078363

PATIENT
  Age: 65 Year
  Sex: Female

DRUGS (2)
  1. APIDRA [Suspect]
     Dosage: PRODUCT STARTED 2-3 YEARS AGODOSAGE: SLIDING SCALE
     Route: 058
  2. SOLOSTAR [Suspect]

REACTIONS (5)
  - VISUAL ACUITY REDUCED [None]
  - BLOOD GLUCOSE INCREASED [None]
  - INJECTION SITE PAIN [None]
  - INJECTION SITE LACERATION [None]
  - BLOOD GLUCOSE DECREASED [None]
